FAERS Safety Report 7382851-7 (Version None)
Quarter: 2011Q1

REPORT INFORMATION
  Report Type: 
  Country: None (occurrence: None)
  Receive Date: 20110325
  Receipt Date: 20110325
  Transmission Date: 20110831
  Serious: No
  Sender: FDA-Public Use
  Company Number: None

PATIENT
  Age: 65 Year
  Sex: Male

DRUGS (1)
  1. IV PREP WIPES 50'S #59421200 SMITH AND NEWPHREW [Suspect]
     Dosage: USE AS DIRECTED

REACTIONS (1)
  - APPLICATION SITE RASH [None]
